FAERS Safety Report 19223016 (Version 1)
Quarter: 2021Q2

REPORT INFORMATION
  Report Type: Spontaneous
  Country: CN (occurrence: CN)
  Receive Date: 20210505
  Receipt Date: 20210505
  Transmission Date: 20210717
  Serious: Yes (Hospitalization)
  Sender: FDA-Public Use
  Company Number: CN-ELI_LILLY_AND_COMPANY-CN202104012843

PATIENT
  Age: 36 Year
  Sex: Male

DRUGS (1)
  1. TRULICITY [Suspect]
     Active Substance: DULAGLUTIDE
     Indication: DIABETES MELLITUS
     Dosage: 0.75 MG, WEEKLY (1/W)
     Route: 058
     Dates: start: 20210326, end: 20210417

REACTIONS (8)
  - Abdominal distension [Recovering/Resolving]
  - Constipation [Recovering/Resolving]
  - Irritability [Recovering/Resolving]
  - Abdominal pain [Recovering/Resolving]
  - Dysphoria [Recovering/Resolving]
  - Diabetes mellitus inadequate control [Recovering/Resolving]
  - Dizziness [Recovering/Resolving]
  - Nausea [Recovering/Resolving]

NARRATIVE: CASE EVENT DATE: 20210411
